FAERS Safety Report 5128376-0 (Version None)
Quarter: 2006Q4

REPORT INFORMATION
  Report Type: 
  Country: None (occurrence: None)
  Receive Date: 20061017
  Receipt Date: 20060927
  Transmission Date: 20070319
  Serious: Yes (Hospitalization, Other)
  Sender: FDA-Public Use
  Company Number: PHBS2006JP15033

PATIENT
  Sex: Male

DRUGS (4)
  1. CYCLOSPORINE [Suspect]
     Indication: CORD BLOOD TRANSPLANT THERAPY
  2. METHYLPREDNISOLONE [Concomitant]
     Indication: ANAEMIA HAEMOLYTIC AUTOIMMUNE
     Dosage: PULSE THERAPY
     Dates: start: 20051101
  3. PREDNISOLONE [Concomitant]
     Dosage: 20 MG/D
  4. MYCOPHENOLATE MOFETIL [Concomitant]
     Dosage: 1 G/D

REACTIONS (16)
  - ACQUIRED HAEMOPHILIA [None]
  - ACTIVATED PARTIAL THROMBOPLASTIN TIME PROLONGED [None]
  - ANAEMIA HAEMOLYTIC AUTOIMMUNE [None]
  - CONVULSION [None]
  - DIABETES MELLITUS [None]
  - FACTOR VIII INHIBITION [None]
  - GRAFT VERSUS HOST DISEASE [None]
  - HAEMORRHAGE SUBCUTANEOUS [None]
  - JOINT SWELLING [None]
  - LICHENOID KERATOSIS [None]
  - NEPHROTIC SYNDROME [None]
  - PAIN [None]
  - SCLERODERMA [None]
  - SWELLING [None]
  - THROMBOCYTOPENIA [None]
  - TOXIC INDUCED ENCEPHALOPATHY [None]
